FAERS Safety Report 17063594 (Version 1)
Quarter: 2019Q4

REPORT INFORMATION
  Report Type: Report from Study
  Country: ES (occurrence: ES)
  Receive Date: 20191122
  Receipt Date: 20191122
  Transmission Date: 20200122
  Serious: Yes (Hospitalization)
  Sender: FDA-Public Use
  Company Number: ES-TEVA-2019-ES-1139235

PATIENT
  Age: 94 Year
  Sex: Male

DRUGS (1)
  1. AMOXICLINA-CLAVULANICO [Suspect]
     Active Substance: AMOXICILLIN\CLAVULANIC ACID
     Dosage: 500/125 MGR , 1 DOSAGE FORMS 8 HOURS
     Route: 048
     Dates: start: 201905, end: 201905

REACTIONS (2)
  - Hyperbilirubinaemia [Recovered/Resolved]
  - Drug-induced liver injury [Recovered/Resolved]

NARRATIVE: CASE EVENT DATE: 20190515
